FAERS Safety Report 7525564-0 (Version None)
Quarter: 2011Q2

REPORT INFORMATION
  Report Type: 
  Country: None (occurrence: None)
  Receive Date: 20110606
  Receipt Date: 20110526
  Transmission Date: 20111010
  Serious: Yes (Hospitalization)
  Sender: FDA-Public Use
  Company Number: JP-PFIZER INC-2011072605

PATIENT
  Age: 35 Year
  Sex: Female
  Weight: 63.7 kg

DRUGS (6)
  1. SOLU-CORTEF [Concomitant]
     Indication: ADRENAL INSUFFICIENCY
     Dosage: 50 MG, 2X/DAY
     Route: 041
     Dates: start: 20110318, end: 20110321
  2. FAMOTIDINE [Suspect]
     Indication: GASTRIC ULCER
     Dosage: 20 MG DAILY
     Route: 041
     Dates: start: 20110319, end: 20110322
  3. NORVASC [Suspect]
     Indication: HYPERTENSION
     Dosage: 5 MG DAILY
     Route: 048
     Dates: start: 20110319, end: 20110325
  4. CEFAZOLIN [Suspect]
     Indication: INFECTION
     Dosage: 1 G DAILY
     Route: 042
     Dates: start: 20110319, end: 20110323
  5. SOLDEM 3A [Concomitant]
     Indication: RENAL FAILURE
     Dosage: 100 ML, 2X/DAY
     Route: 041
     Dates: start: 20110318, end: 20110328
  6. LASIX [Concomitant]
     Indication: RENAL FAILURE
     Dosage: 10 MG, 2X/DAY
     Route: 041
     Dates: start: 20110318, end: 20110321

REACTIONS (1)
  - HEPATIC FUNCTION ABNORMAL [None]
